FAERS Safety Report 22612294 (Version 1)
Quarter: 2023Q2

REPORT INFORMATION
  Report Type: Spontaneous
  Country: US (occurrence: US)
  Receive Date: 20230617
  Receipt Date: 20230617
  Transmission Date: 20230722
  Serious: Yes (Other)
  Sender: FDA-Public Use
  Company Number: US-AUROBINDO-AUR-APL-2023-042061

PATIENT
  Age: 64 Year
  Sex: Female

DRUGS (3)
  1. WARFARIN SODIUM [Suspect]
     Active Substance: WARFARIN SODIUM
     Indication: Primary biliary cholangitis
     Dosage: UNK
     Route: 065
  2. METHIMAZOLE [Concomitant]
     Active Substance: METHIMAZOLE
     Indication: Product used for unknown indication
     Dosage: UNK
     Route: 065
  3. PANTOPRAZOLE [Concomitant]
     Active Substance: PANTOPRAZOLE
     Indication: Product used for unknown indication
     Dosage: UNK
     Route: 065

REACTIONS (4)
  - Haemorrhage [Unknown]
  - Upper gastrointestinal haemorrhage [Unknown]
  - Hyperthyroidism [Unknown]
  - International normalised ratio increased [Unknown]
